FAERS Safety Report 22395186 (Version 2)
Quarter: 2023Q2

REPORT INFORMATION
  Report Type: Spontaneous
  Country: JP (occurrence: JP)
  Receive Date: 20230601
  Receipt Date: 20230618
  Transmission Date: 20230721
  Serious: Yes (Other)
  Sender: FDA-Public Use
  Company Number: JP-SA-2023SA163863

PATIENT
  Age: 70 Year
  Sex: Male

DRUGS (1)
  1. DUPILUMAB [Suspect]
     Active Substance: DUPILUMAB
     Indication: Dermatitis atopic
     Dosage: FIVE SHOTS OVER 2 MONTHS IN TOTAL
     Route: 065

REACTIONS (7)
  - Peripheral T-cell lymphoma unspecified [Recovering/Resolving]
  - Lymphadenopathy [Recovering/Resolving]
  - Dermatitis [Recovering/Resolving]
  - Skin lesion [Recovering/Resolving]
  - Rash erythematous [Recovering/Resolving]
  - Exfoliative rash [Recovering/Resolving]
  - Febrile neutropenia [Recovering/Resolving]
